FAERS Safety Report 23525048 (Version 2)
Quarter: 2024Q1

REPORT INFORMATION
  Report Type: Spontaneous
  Country: ES (occurrence: ES)
  Receive Date: 20240215
  Receipt Date: 20240226
  Transmission Date: 20240410
  Serious: Yes (Hospitalization, Other)
  Sender: FDA-Public Use
  Company Number: ES-Accord-403655

PATIENT
  Age: 66 Year
  Sex: Female
  Weight: 53 kg

DRUGS (6)
  1. IRINOTECAN [Suspect]
     Active Substance: IRINOTECAN
     Indication: Colorectal cancer metastatic
     Dosage: 220.05 MILLIGRAM, EVERY 2 WEEKS
     Route: 065
     Dates: start: 20210707, end: 20220929
  2. LEUCOVORIN CALCIUM [Suspect]
     Active Substance: LEUCOVORIN CALCIUM
     Indication: Colorectal cancer metastatic
     Dosage: 586.8 MILLIGRAM, EVERY 2 WEEKS
     Route: 065
     Dates: start: 20210707, end: 20220929
  3. FLUOROURACIL [Suspect]
     Active Substance: FLUOROURACIL
     Indication: Colorectal cancer metastatic
     Dosage: 2816.64 MILLIGRAM, EVERY 2 WEEKS
     Route: 040
     Dates: start: 20210707
  4. FLUOROURACIL [Suspect]
     Active Substance: FLUOROURACIL
     Dosage: 469.44 MILLIGRAM, EVERY 2 WEEKS IV INFUSION
     Route: 065
     Dates: start: 20210707
  5. CETUXIMAB [Concomitant]
     Active Substance: CETUXIMAB
     Indication: Colorectal cancer metastatic
     Dosage: 733.5 MILLIGRAM,EVERY 2 WEEKS
     Route: 065
     Dates: start: 20210707, end: 20220929
  6. ENCORAFENIB [Concomitant]
     Active Substance: ENCORAFENIB
     Indication: Colorectal cancer metastatic
     Dosage: 225 MILLIGRAM, ONCE A DAY
     Route: 048
     Dates: start: 20210707, end: 20220929

REACTIONS (1)
  - Colitis [Recovered/Resolved]

NARRATIVE: CASE EVENT DATE: 20221002
